FAERS Safety Report 5343269-1 (Version None)
Quarter: 2007Q2

REPORT INFORMATION
  Report Type: 
  Country: None (occurrence: None)
  Receive Date: 20070502
  Receipt Date: 20070215
  Transmission Date: 20071010
  Serious: Yes (Hospitalization)
  Sender: FDA-Public Use
  Company Number: PHEH2007US02121

PATIENT
  Age: 42 Year
  Sex: Male
  Weight: 71.2 kg

DRUGS (4)
  1. LOTREL [Suspect]
     Indication: HYPERTENSION
     Dosage: 5/20 MG, QD, ORAL
     Route: 048
     Dates: start: 20070212, end: 20070213
  2. LORATADINE [Suspect]
     Indication: HYPERSENSITIVITY
     Dosage: 10 MG, QD, ORAL
     Route: 048
     Dates: start: 20070212
  3. FLONASE [Suspect]
     Indication: SINUSITIS
     Dosage: INTRANASAL
     Dates: start: 20070212
  4. ULTRAM [Suspect]
     Indication: PAIN
     Dosage: 50 MG
     Dates: start: 20070212

REACTIONS (2)
  - ANGIOEDEMA [None]
  - WHEEZING [None]
